FAERS Safety Report 14457173 (Version 2)
Quarter: 2018Q1

REPORT INFORMATION
  Report Type: Spontaneous
  Country: IT (occurrence: IT)
  Receive Date: 20180130
  Receipt Date: 20180206
  Transmission Date: 20180509
  Serious: Yes (Hospitalization, Other)
  Sender: FDA-Public Use
  Company Number: PHHY2018IT012548

PATIENT
  Sex: Female

DRUGS (4)
  1. IRON [Concomitant]
     Active Substance: IRON
     Indication: ANAEMIA
     Route: 048
  2. OCRELIZUMAB. [Concomitant]
     Active Substance: OCRELIZUMAB
     Indication: PRODUCT USED FOR UNKNOWN INDICATION
     Dosage: UNK
     Route: 065
  3. TECFIDERA [Concomitant]
     Active Substance: DIMETHYL FUMARATE
     Indication: PRODUCT USED FOR UNKNOWN INDICATION
     Dosage: UNK
     Route: 065
  4. GILENYA [Suspect]
     Active Substance: FINGOLIMOD HYDROCHLORIDE
     Indication: MULTIPLE SCLEROSIS
     Dosage: 0.5 MG, QD
     Route: 048

REACTIONS (35)
  - Ischaemia [Unknown]
  - Dyspnoea [Unknown]
  - Central nervous system lesion [Unknown]
  - Ejection fraction decreased [Unknown]
  - Malaise [Unknown]
  - Tachycardia [Unknown]
  - Headache [Unknown]
  - Asthenia [Unknown]
  - Blood pressure systolic increased [Unknown]
  - Akinesia [Unknown]
  - Tricuspid valve incompetence [Unknown]
  - Dysmetria [Unknown]
  - Hyperreflexia [Unknown]
  - Lymphocyte count decreased [Unknown]
  - Chest discomfort [Unknown]
  - Troponin I increased [Unknown]
  - Vomiting [Unknown]
  - Movement disorder [Unknown]
  - Stress cardiomyopathy [Unknown]
  - Palpitations [Unknown]
  - Epigastric discomfort [Unknown]
  - Brain natriuretic peptide increased [Unknown]
  - Gait disturbance [Unknown]
  - Limb discomfort [Unknown]
  - Hot flush [Unknown]
  - Mitral valve incompetence [Unknown]
  - Leukopenia [Unknown]
  - Dysphonia [Unknown]
  - Acute coronary syndrome [Unknown]
  - Vertigo [Unknown]
  - Feeling hot [Unknown]
  - Electrocardiogram QT prolonged [Unknown]
  - Nystagmus [Unknown]
  - Dysphagia [Unknown]
  - Extensor plantar response [Unknown]
